FAERS Safety Report 11920248 (Version 1)
Quarter: 2016Q1

REPORT INFORMATION
  Report Type: Spontaneous
  Country: US (occurrence: US)
  Receive Date: 20160115
  Receipt Date: 20160115
  Transmission Date: 20160526
  Serious: No
  Sender: FDA-Public Use
  Company Number: US-BAYER-2016-008371

PATIENT
  Age: 42 Year
  Sex: Female

DRUGS (1)
  1. MIRENA [Suspect]
     Active Substance: LEVONORGESTREL
     Indication: CONTRACEPTION
     Dosage: 20 MCG/24HR, CONT
     Route: 015
     Dates: start: 201508

REACTIONS (11)
  - Depression [None]
  - Constipation [None]
  - Adverse event [None]
  - Weight increased [None]
  - Feeling abnormal [None]
  - Hormone level abnormal [None]
  - Dysmenorrhoea [None]
  - Migraine [None]
  - Abdominal distension [None]
  - Depressed mood [None]
  - Metrorrhagia [None]
